FAERS Safety Report 7194146-5 (Version None)
Quarter: 2010Q4

REPORT INFORMATION
  Report Type: 
  Country: None (occurrence: None)
  Receive Date: 20101223
  Receipt Date: 20101011
  Transmission Date: 20110411
  Serious: No
  Sender: FDA-Public Use
  Company Number: US-AMGEN-TCS436318

PATIENT

DRUGS (4)
  1. ENBREL [Suspect]
     Indication: PSORIATIC ARTHROPATHY
     Dosage: 20 MG, QWK
     Route: 058
     Dates: start: 20100713
  2. FLUOCINONIDE [Concomitant]
     Indication: PSORIASIS
     Dosage: UNK UNK, QD
     Route: 061
     Dates: start: 20100617
  3. FLUOCINONIDE [Concomitant]
     Dosage: .05 %, BID
     Route: 061
     Dates: start: 20100204, end: 20100803
  4. CALCIPOTRIENE [Concomitant]
     Indication: PSORIASIS
     Dosage: .005 %, BID
     Route: 061
     Dates: start: 20100204

REACTIONS (1)
  - PHARYNGITIS [None]
